FAERS Safety Report 10684891 (Version 1)
Quarter: 2014Q4

REPORT INFORMATION
  Report Type: Spontaneous
  Country: US (occurrence: None)
  Receive Date: 20141230
  Receipt Date: 20141230
  Transmission Date: 20150529
  Serious: No
  Sender: FDA-Public Use
  Company Number: None

PATIENT
  Age: 61 Year
  Sex: Male
  Weight: 66.68 kg

DRUGS (1)
  1. SUMATRIPTAN. [Suspect]
     Active Substance: SUMATRIPTAN
     Indication: MIGRAINE
     Dosage: SUBCUTANEOUS INJECTION?AS NEEDED ?GIVEN INTO/UNDER THE SKIN
     Route: 058
     Dates: start: 20141214, end: 20141225

REACTIONS (5)
  - Dyspnoea [None]
  - Product substitution issue [None]
  - Chest pain [None]
  - Paraesthesia [None]
  - Product quality issue [None]

NARRATIVE: CASE EVENT DATE: 20141225
